FAERS Safety Report 9580096 (Version 1)
Quarter: 2013Q3

REPORT INFORMATION
  Report Type: Spontaneous
  Country: US (occurrence: None)
  Receive Date: 20130930
  Receipt Date: 20130930
  Transmission Date: 20140515
  Serious: Yes (Life-Threatening, Disabling, Other)
  Sender: FDA-Public Use
  Company Number: None

PATIENT
  Age: 53 Year
  Sex: Female
  Weight: 81.65 kg

DRUGS (1)
  1. COMPLERA [Suspect]
     Indication: IMMUNE SYSTEM DISORDER

REACTIONS (9)
  - Weight increased [None]
  - Blood cholesterol increased [None]
  - Mood altered [None]
  - Depression [None]
  - Lethargy [None]
  - Insomnia [None]
  - Renal impairment [None]
  - Gallbladder pain [None]
  - Pain [None]
